FAERS Safety Report 5125551-6 (Version None)
Quarter: 2006Q4

REPORT INFORMATION
  Report Type: 
  Country: None (occurrence: None)
  Receive Date: 20061006
  Receipt Date: 20060922
  Transmission Date: 20070319
  Serious: Yes (Other)
  Sender: FDA-Public Use
  Company Number: 2006S1009022

PATIENT
  Sex: Female
  Weight: 65.7716 kg

DRUGS (3)
  1. ATENOLOL [Suspect]
     Indication: HYPERTENSION
     Dosage: 25 MG; QD; PO
     Route: 048
     Dates: start: 19990101, end: 20060201
  2. FENOFIBRATE [Concomitant]
  3. LISINOPRIL + HIDROCLOROTIAZIDA [Concomitant]

REACTIONS (4)
  - AMNESIA [None]
  - BLOOD PRESSURE INCREASED [None]
  - BRAIN DAMAGE [None]
  - TRANSIENT ISCHAEMIC ATTACK [None]
